FAERS Safety Report 14283881 (Version 2)
Quarter: 2017Q4

REPORT INFORMATION
  Report Type: Report from Study
  Country: US (occurrence: US)
  Receive Date: 20171214
  Receipt Date: 20171226
  Transmission Date: 20180321
  Serious: Yes (Hospitalization)
  Sender: FDA-Public Use
  Company Number: US-ROCHE-2036063

PATIENT
  Age: 71 Year
  Sex: Female
  Weight: 72.64 kg

DRUGS (3)
  1. OXYBUTIN [Concomitant]
     Active Substance: OXYBUTYNIN
  2. OCREVUS [Suspect]
     Active Substance: OCRELIZUMAB
     Indication: MULTIPLE SCLEROSIS
     Dosage: NEXT DOSE: 13/NOV/2017 AND 27/NOV/2017
     Route: 042
     Dates: start: 20171013
  3. OCREVUS [Suspect]
     Active Substance: OCRELIZUMAB
     Route: 042
     Dates: start: 20171013

REACTIONS (12)
  - Malaise [Not Recovered/Not Resolved]
  - Spinal pain [Unknown]
  - Neck pain [Not Recovered/Not Resolved]
  - Back pain [Unknown]
  - Pain [Not Recovered/Not Resolved]
  - Infection [Unknown]
  - Pelvic pain [Unknown]
  - Cystitis [Not Recovered/Not Resolved]
  - Headache [Recovered/Resolved]
  - Pain [Unknown]
  - Pollakiuria [Unknown]
  - Urinary incontinence [Unknown]

NARRATIVE: CASE EVENT DATE: 20171129
